FAERS Safety Report 6467589-2 (Version None)
Quarter: 2009Q4

REPORT INFORMATION
  Report Type: 
  Country: None (occurrence: None)
  Receive Date: 20091202
  Receipt Date: 20091123
  Transmission Date: 20100525
  Serious: Yes (Other)
  Sender: FDA-Public Use
  Company Number: DE-SANOFI-AVENTIS-2009SA005333

PATIENT
  Sex: Male

DRUGS (2)
  1. DOCETAXEL [Suspect]
  2. TRASTUZUMAB [Concomitant]

REACTIONS (1)
  - ALVEOLITIS ALLERGIC [None]
